FAERS Safety Report 16132473 (Version 1)
Quarter: 2019Q1

REPORT INFORMATION
  Report Type: Spontaneous
  Country: GB (occurrence: GB)
  Receive Date: 20190329
  Receipt Date: 20190329
  Transmission Date: 20190418
  Serious: Yes (Hospitalization)
  Sender: FDA-Public Use
  Company Number: GB-009507513-1903GBR012183

PATIENT
  Age: 89 Year
  Sex: Male

DRUGS (11)
  1. ACETAMINOPHEN. [Concomitant]
     Active Substance: ACETAMINOPHEN
     Dosage: 1000 MG,  FOUR TIMES A DAY
     Route: 048
  2. QUETIAPINE FUMARATE. [Concomitant]
     Active Substance: QUETIAPINE FUMARATE
     Dosage: 50 MILLIGRAM, QD
     Route: 048
  3. LORAZEPAM. [Concomitant]
     Active Substance: LORAZEPAM
     Dosage: 0.5 MILLIGRAM
     Route: 048
  4. DOXAZOSIN [Concomitant]
     Active Substance: DOXAZOSIN\DOXAZOSIN MESYLATE
     Dosage: 4 MILLIGRAM, QD
  5. LANSOPRAZOLE. [Concomitant]
     Active Substance: LANSOPRAZOLE
     Dosage: 30 MILLIGRAM, QD(MORNING)
     Route: 048
  6. ASPIRIN. [Suspect]
     Active Substance: ASPIRIN
     Dosage: 75 MILLIGRAM, QD
     Route: 048
  7. CASSIA [Concomitant]
     Dosage: 30MILLIGRAM, QD(NIGHT)
     Route: 048
  8. ALENDRONATE SODIUM. [Suspect]
     Active Substance: ALENDRONATE SODIUM
     Dosage: 70 MILLIGRAM, QW
     Route: 048
  9. MIRTAZAPINE. [Concomitant]
     Active Substance: MIRTAZAPINE
     Dosage: 15 MILLIGRAM, QD
     Route: 048
  10. FERROUS FUMARATE [Concomitant]
     Active Substance: FERROUS FUMARATE
     Dosage: 210MILLIGRAM, QD
     Route: 048
  11. AMLODIPINE [Concomitant]
     Active Substance: AMLODIPINE BESYLATE
     Dosage: 5 MILLIGRAM, QD
     Route: 048

REACTIONS (2)
  - Melaena [Recovered/Resolved]
  - Rectal haemorrhage [Recovered/Resolved]
